FAERS Safety Report 24987967 (Version 1)
Quarter: 2025Q1

REPORT INFORMATION
  Report Type: Other
  Country: GB (occurrence: GB)
  Receive Date: 20250219
  Receipt Date: 20250219
  Transmission Date: 20250409
  Serious: Yes (Other)
  Sender: GLENMARK
  Company Number: GB-MHRA-TPP2347726C27414098YC1739279588127

PATIENT

DRUGS (12)
  1. EZETIMIBE [Suspect]
     Active Substance: EZETIMIBE
     Indication: Ill-defined disorder
     Dosage: 10 MILLIGRAM, OD (ALONGSIDE ROSUVASTATIN)
     Route: 065
     Dates: start: 20241029, end: 20250205
  2. AMLODIPINE [Concomitant]
     Active Substance: AMLODIPINE BESYLATE
     Indication: Ill-defined disorder
     Dosage: QD (TAKE ONE DAILY)
     Route: 065
     Dates: start: 20241029
  3. CAPSAICIN [Concomitant]
     Active Substance: CAPSAICIN
     Indication: Ill-defined disorder
     Route: 065
     Dates: start: 20241029
  4. Cetraben [Concomitant]
     Indication: Ill-defined disorder
     Route: 065
     Dates: start: 20241029
  5. CLOBETASOL PROPIONATE [Concomitant]
     Active Substance: CLOBETASOL PROPIONATE
     Indication: Ill-defined disorder
     Dosage: QD (APPLY 1-2 TIMES/DAY)
     Route: 065
     Dates: start: 20241029
  6. EASYHALER [Concomitant]
     Indication: Ill-defined disorder
     Dates: start: 20241029
  7. ERYTHROMYCIN [Concomitant]
     Active Substance: ERYTHROMYCIN
     Indication: Ill-defined disorder
     Dosage: QID (TAKE ONE 4 TIMES/DAY)
     Route: 065
     Dates: start: 20241029
  8. POTASSIUM BICARBONATE\SODIUM ALGINATE [Concomitant]
     Active Substance: POTASSIUM BICARBONATE\SODIUM ALGINATE
     Indication: Ill-defined disorder
     Dosage: 10 MILLILITER, QID (10MLS TO BE TAKEN FOUR TIMES DAILY WHEN REQUIRED)
     Route: 065
     Dates: start: 20241029
  9. LEVOTHYROXINE [Concomitant]
     Active Substance: LEVOTHYROXINE
     Indication: Ill-defined disorder
     Dosage: QD, ONCE DAILY (TOTAL DOSE 175/150 ALT DAYS)
     Route: 065
     Dates: start: 20241029
  10. FLUTICASONE FUROATE\VILANTEROL TRIFENATATE [Concomitant]
     Active Substance: FLUTICASONE FUROATE\VILANTEROL TRIFENATATE
     Indication: Ill-defined disorder
     Dosage: 1 DOSAGE FORM, QD (INHALE 1 DOSE DAILY)
     Dates: start: 20241029
  11. ROSUVASTATIN [Concomitant]
     Active Substance: ROSUVASTATIN
     Indication: Ill-defined disorder
     Dosage: 1 DOSAGE FORM, QD (TAKE ONE TABLET ONCE A DAY ALONGSIDE EZETIMIBE....)
     Route: 065
     Dates: start: 20241029
  12. Zerobase [Concomitant]
     Indication: Ill-defined disorder
     Route: 065
     Dates: start: 20241029

REACTIONS (2)
  - Drug intolerance [Unknown]
  - Diarrhoea [Recovered/Resolved]
